FAERS Safety Report 19125216 (Version 1)
Quarter: 2021Q2

REPORT INFORMATION
  Report Type: Spontaneous
  Country: IN (occurrence: IN)
  Receive Date: 20210413
  Receipt Date: 20210413
  Transmission Date: 20210717
  Serious: Yes (Hospitalization, Other)
  Sender: FDA-Public Use
  Company Number: IN-LUPIN LIMITED-2021-04577

PATIENT
  Age: 42 Year
  Sex: Female

DRUGS (4)
  1. URSODEOXYCHOLIC ACID [Suspect]
     Active Substance: URSODIOL
     Indication: PRURITUS
     Dosage: UNK
     Route: 065
  2. CALAMINE [Suspect]
     Active Substance: CALAMINE\FERRIC OXIDE RED\ZINC OXIDE
     Indication: PRURITUS
     Dosage: UNK
     Route: 065
  3. RIFAMPIN. [Suspect]
     Active Substance: RIFAMPIN
     Indication: PRURITUS
     Dosage: UNK
     Route: 065
  4. CHOLESTYRAMINE. [Suspect]
     Active Substance: CHOLESTYRAMINE
     Indication: PRURITUS
     Dosage: UNK
     Route: 065

REACTIONS (1)
  - Therapy non-responder [Unknown]
